FAERS Safety Report 5535118-3 (Version None)
Quarter: 2007Q4

REPORT INFORMATION
  Report Type: 
  Country: None (occurrence: None)
  Receive Date: 20071203
  Receipt Date: 20071115
  Transmission Date: 20080405
  Serious: Yes (Other)
  Sender: FDA-Public Use
  Company Number: 2007JP004834

PATIENT
  Age: 4 Year
  Sex: Male

DRUGS (1)
  1. PROGRAF [Suspect]
     Indication: BONE MARROW TRANSPLANT

REACTIONS (3)
  - CYSTITIS HAEMORRHAGIC [None]
  - PSEUDOMEMBRANOUS COLITIS [None]
  - THROMBOTIC MICROANGIOPATHY [None]
